FAERS Safety Report 19463355 (Version 2)
Quarter: 2021Q3

REPORT INFORMATION
  Report Type: Spontaneous
  Country: CN (occurrence: CN)
  Receive Date: 20210625
  Receipt Date: 20210717
  Transmission Date: 20211014
  Serious: Yes (Other)
  Sender: FDA-Public Use
  Company Number: CN-ABBVIE-21K-035-3966385-00

PATIENT
  Sex: Female

DRUGS (1)
  1. IMBRUVICA [Suspect]
     Active Substance: IBRUTINIB
     Indication: WALDENSTROM^S MACROGLOBULINAEMIA
     Dosage: 90 CAPSULES
     Route: 048

REACTIONS (2)
  - Deafness [Unknown]
  - Waldenstrom^s macroglobulinaemia [Not Recovered/Not Resolved]
